FAERS Safety Report 8085124-2 (Version None)
Quarter: 2012Q1

REPORT INFORMATION
  Report Type: 
  Country: None (occurrence: None)
  Receive Date: 20120128
  Receipt Date: 20110315
  Transmission Date: 20120608
  Serious: No
  Sender: FDA-Public Use
  Company Number: US-ABBOTT-11P-163-0711466-00

PATIENT
  Age: 59 Year
  Sex: Male

DRUGS (3)
  1. BLOOD PRESSURE MEDICATION [Concomitant]
     Indication: PRODUCT USED FOR UNKNOWN INDICATION
  2. HUMIRA [Suspect]
     Indication: CROHN'S DISEASE
     Dates: start: 20071001
  3. BLOOD PRESSURE MEDICATION [Concomitant]

REACTIONS (8)
  - NASOPHARYNGITIS [None]
  - COUGH [None]
  - INTRAOCULAR PRESSURE INCREASED [None]
  - PROSTATOMEGALY [None]
  - GLAUCOMA [None]
  - OROPHARYNGEAL PAIN [None]
  - RHINORRHOEA [None]
  - EYE DISCHARGE [None]
